FAERS Safety Report 22159029 (Version 2)
Quarter: 2023Q2

REPORT INFORMATION
  Report Type: Spontaneous
  Country: US (occurrence: US)
  Receive Date: 20230331
  Receipt Date: 20230425
  Transmission Date: 20230721
  Serious: No
  Sender: FDA-Public Use
  Company Number: US-SA-SAC20230329000070

PATIENT
  Age: 51 Year
  Sex: Female

DRUGS (1)
  1. KEVZARA [Suspect]
     Active Substance: SARILUMAB
     Indication: Rheumatoid arthritis
     Dosage: 200 MG, OTHER
     Route: 058
     Dates: start: 202205

REACTIONS (3)
  - Malaise [Unknown]
  - Limb discomfort [Unknown]
  - Infection [Unknown]

NARRATIVE: CASE EVENT DATE: 20230320
